FAERS Safety Report 22530353 (Version 4)
Quarter: 2024Q4

REPORT INFORMATION
  Report Type: Spontaneous
  Country: US (occurrence: US)
  Receive Date: 20230607
  Receipt Date: 20241125
  Transmission Date: 20250114
  Serious: Yes (Other)
  Sender: PFIZER
  Company Number: US-PFIZER INC-202300210129

PATIENT
  Age: 80 Year
  Sex: Female

DRUGS (1)
  1. ALDACTAZIDE [Suspect]
     Active Substance: HYDROCHLOROTHIAZIDE\SPIRONOLACTONE
     Indication: Hypertension
     Dosage: UNK

REACTIONS (2)
  - Macular degeneration [Unknown]
  - Micturition disorder [Not Recovered/Not Resolved]
